FAERS Safety Report 20497456 (Version 2)
Quarter: 2022Q1

REPORT INFORMATION
  Report Type: Spontaneous
  Country: US (occurrence: US)
  Receive Date: 20220221
  Receipt Date: 20220330
  Transmission Date: 20220423
  Serious: No
  Sender: FDA-Public Use
  Company Number: US-JNJFOC-20220240226

PATIENT
  Age: 74 Year
  Sex: Male

DRUGS (1)
  1. BALVERSA [Suspect]
     Active Substance: ERDAFITINIB
     Indication: Product used for unknown indication
     Dosage: 3 MG?2 TABLETS DAILY
     Route: 048
     Dates: start: 20210622

REACTIONS (2)
  - Skin reaction [Unknown]
  - Visual impairment [Unknown]
